FAERS Safety Report 9738883 (Version 2)
Quarter: 2013Q4

REPORT INFORMATION
  Report Type: Spontaneous
  Country: US (occurrence: US)
  Receive Date: 20131209
  Receipt Date: 20131213
  Transmission Date: 20140711
  Serious: Yes (Other)
  Sender: FDA-Public Use
  Company Number: US-RB-060630-13

PATIENT
  Age: 62 Year
  Sex: Male

DRUGS (5)
  1. MUCINEX FAST MAX MAXIMUM STRENGTH SEVERE COLD LIQUID [Suspect]
     Indication: PRODUCT USED FOR UNKNOWN INDICATION
     Dosage: 20 ML EVERY 4 HOURS. LAST TOOK ON 01/DEC/2013
     Route: 048
     Dates: start: 20131201
  2. MUCINEX FAST MAX MAXIMUM STRENGTH SEVERE COLD LIQUID [Suspect]
  3. MUCINEX FAST MAX MAXIMUM STRENGTH SEVERE COLD LIQUID [Suspect]
  4. MUCINEX FAST MAX MAXIMUM STRENGTH SEVERE COLD LIQUID [Suspect]
  5. PRIMIDONE [Concomitant]
     Indication: TREMOR
     Dosage: TAKES PRIMIDONE DAILY

REACTIONS (1)
  - Haematochezia [Recovered/Resolved]
